FAERS Safety Report 23457458 (Version 2)
Quarter: 2024Q1

REPORT INFORMATION
  Report Type: Spontaneous
  Country: CN (occurrence: CN)
  Receive Date: 20240130
  Receipt Date: 20240227
  Transmission Date: 20240409
  Serious: Yes (Other)
  Sender: FDA-Public Use
  Company Number: CN-PFIZER INC-PV202400012326

PATIENT
  Age: 5 Month
  Sex: Male
  Weight: 8.5 kg

DRUGS (2)
  1. AZITHROMYCIN [Suspect]
     Active Substance: AZITHROMYCIN
     Indication: Mycoplasma infection
     Dosage: 0.085 G, 1X/DAY
     Route: 048
     Dates: start: 20240108, end: 20240113
  2. PROCATEROL HYDROCHLORIDE [Suspect]
     Active Substance: PROCATEROL HYDROCHLORIDE
     Indication: Tracheal disorder
     Dosage: 2 ML, 2X/DAY
     Route: 048
     Dates: start: 20240111, end: 20240111

REACTIONS (2)
  - Infantile diarrhoea [Recovering/Resolving]
  - Off label use [Unknown]

NARRATIVE: CASE EVENT DATE: 20240108
